FAERS Safety Report 7129024-0 (Version None)
Quarter: 2010Q4

REPORT INFORMATION
  Report Type: 
  Country: None (occurrence: None)
  Receive Date: 20101112
  Receipt Date: 20101026
  Transmission Date: 20110411
  Serious: Yes (Other)
  Sender: FDA-Public Use
  Company Number: AUR-APL-2010-02677

PATIENT
  Age: 28 Year
  Sex: Female

DRUGS (2)
  1. CITALOPRAM [Suspect]
     Indication: DEPRESSION
  2. SCOPOLAMINE [Suspect]
     Dosage: 1.5MG TRANSDERMAL
     Route: 062

REACTIONS (6)
  - ANKLE OPERATION [None]
  - DRUG EFFECT DECREASED [None]
  - MYDRIASIS [None]
  - PAIN [None]
  - TACHYCARDIA [None]
  - UNRESPONSIVE TO STIMULI [None]
